FAERS Safety Report 8718410 (Version 2)
Quarter: 2012Q4

REPORT INFORMATION
  Report Type: 
  Country: US (occurrence: US)
  Receive Date: 20120810
  Receipt Date: 20120905
  Transmission Date: 20130627
  Serious: Yes (Other)
  Sender: FDA-Public Use
  Company Number: US-ASTRAZENECA-2012SE46111

PATIENT
  Age: 76 Year
  Sex: Female
  Weight: 68.5 kg

DRUGS (21)
  1. OMEPRAZOLE [Suspect]
     Route: 048
  2. CRESTOR [Suspect]
     Route: 048
  3. LORAZEPAM [Concomitant]
     Indication: ANXIETY
     Dosage: 1/2 TAB AS NEEDED
     Route: 048
  4. LORAZEPAM [Concomitant]
     Indication: PANIC ATTACK
     Dosage: 1/2 TAB AS NEEDED
     Route: 048
  5. LISINOPRIL [Concomitant]
     Route: 048
  6. LEXAPRO [Concomitant]
     Route: 048
  7. ALLEGRA [Concomitant]
     Route: 048
  8. FOSAMAX [Concomitant]
     Dosage: 70 MG EVERY 7 DAYS
     Route: 048
  9. ENDOCET [Concomitant]
     Dosage: 5-32 MG 1/2 TAB THREE TIMES IN A DAY
     Route: 048
  10. SYNTHROID [Concomitant]
     Dosage: 75 MCG, 1/2 TAB ON SUNDAY, 1 TAB MONDAY THROUGH FRIDAY
     Route: 048
  11. GABAPENTIN [Concomitant]
     Route: 048
  12. TRAZODONE [Concomitant]
     Indication: SLEEP DISORDER
     Dosage: 100 MG QHS PRN
     Route: 048
  13. SPIRIVA [Concomitant]
     Dosage: 18 MCG ONE PUFF DAILY
  14. B COMPLEX VITAMINS [Concomitant]
     Route: 048
  15. MULTIVITAMIN MULTIMINERALS [Concomitant]
     Route: 048
  16. IPRATROPIUM ALBUTEROL [Concomitant]
     Dosage: 0.5-2.5 3 MG/3ML 2 VIAL TWICE DAILY
  17. VENTOLIN HFA [Concomitant]
     Indication: WHEEZING
     Dosage: 108 (90 BASE) MCG/ACT IN AERO SOLN 2 PUFFS EVERY 4-6HRS AS NEEDED
  18. VENTOLIN HFA [Concomitant]
     Indication: COUGH
     Dosage: 108 (90 BASE) MCG/ACT IN AERO SOLN 2 PUFFS EVERY 4-6HRS AS NEEDED
  19. VENTOLIN HFA [Concomitant]
     Indication: DYSPNOEA
     Dosage: 108 (90 BASE) MCG/ACT IN AERO SOLN 2 PUFFS EVERY 4-6HRS AS NEEDED
  20. FLONASE [Concomitant]
     Indication: ALLERGY PROPHYLAXIS
     Dosage: 50MCG/ACT TWO SPRAY EACH NOSTRILS  ONCE A DAY
     Route: 045
  21. DICLOFENAC SODIUM [Concomitant]
     Dosage: THIN LAYER ON AFFECTED AREA ONCE DAILY PRN

REACTIONS (8)
  - Macular degeneration [Unknown]
  - Anxiety [Unknown]
  - Essential hypertension [Unknown]
  - Obstructive airways disorder [Unknown]
  - Rhinorrhoea [Unknown]
  - Retinal injury [Unknown]
  - Blood cholesterol increased [Unknown]
  - Depression [Unknown]
